FAERS Safety Report 6681054-9 (Version None)
Quarter: 2010Q2

REPORT INFORMATION
  Report Type: 
  Country: None (occurrence: None)
  Receive Date: 20100412
  Receipt Date: 20100331
  Transmission Date: 20101027
  Serious: Yes (Hospitalization)
  Sender: FDA-Public Use
  Company Number: 1000013052

PATIENT
  Age: 81 Year
  Sex: Female

DRUGS (7)
  1. CITALOPRAM HYDROBROMIDE [Suspect]
     Indication: DEPRESSION
     Dosage: 20 MG (20 MG, 1 IN 1 D), ORAL
     Route: 048
     Dates: start: 20081201, end: 20100206
  2. PREVISCAN [Concomitant]
  3. CORDARONE [Concomitant]
  4. ALDALIX [Concomitant]
  5. PARACETAMOL [Concomitant]
  6. MOTILIUM [Concomitant]
  7. ZOLPIDEM [Concomitant]

REACTIONS (7)
  - AKINESIA [None]
  - ATAXIA [None]
  - FALL [None]
  - GENERAL PHYSICAL HEALTH DETERIORATION [None]
  - HYPERTONIA [None]
  - MYOCLONUS [None]
  - TREMOR [None]
